FAERS Safety Report 5931824-7 (Version None)
Quarter: 2008Q4

REPORT INFORMATION
  Report Type: 
  Country: None (occurrence: None)
  Receive Date: 20081027
  Receipt Date: 20081016
  Transmission Date: 20090506
  Serious: Yes (Other)
  Sender: FDA-Public Use
  Company Number: US-PFIZER INC-2008080974

PATIENT
  Age: 61 Year
  Sex: Female
  Weight: 106.6 kg

DRUGS (10)
  1. TIKOSYN [Suspect]
     Indication: ATRIAL FIBRILLATION
     Route: 048
  2. ATENOLOL [Concomitant]
     Route: 048
  3. HYZAAR [Concomitant]
     Route: 048
  4. LIPITOR [Concomitant]
     Dosage: DAILY DOSE:40MG
  5. COUMADIN [Concomitant]
     Dosage: DAILY DOSE:6MG
  6. POTASSIUM CHLORIDE [Concomitant]
     Dosage: DAILY DOSE:10MEQ
  7. LUMIGAN [Concomitant]
     Dosage: TEXT:.3
  8. NASONEX [Concomitant]
  9. LUNESTA [Concomitant]
     Dosage: DAILY DOSE:3MG-TEXT:EVERY NIGHT
     Route: 048
  10. IRON [Concomitant]
     Route: 048

REACTIONS (2)
  - ANTINUCLEAR ANTIBODY POSITIVE [None]
  - KNEE ARTHROPLASTY [None]
